FAERS Safety Report 10967456 (Version 2)
Quarter: 2015Q2

REPORT INFORMATION
  Report Type: Spontaneous
  Country: US (occurrence: US)
  Receive Date: 20150330
  Receipt Date: 20150618
  Transmission Date: 20150821
  Serious: Yes (Other)
  Sender: FDA-Public Use
  Company Number: US-PFIZER INC-2015105968

PATIENT
  Age: 73 Year
  Sex: Female
  Weight: 110.2 kg

DRUGS (1)
  1. REVATIO [Suspect]
     Active Substance: SILDENAFIL CITRATE
     Dosage: 3X/DAY (40 MG IN THE MORNING AND THEN 40 MG ABOUT 4-5 HOURS LATER AND AGAIN 20 MG ABOUT 4-5 HOURS)

REACTIONS (3)
  - Basal cell carcinoma [Unknown]
  - Product use issue [Unknown]
  - Basosquamous carcinoma of skin [Recovered/Resolved]

NARRATIVE: CASE EVENT DATE: 201406
